FAERS Safety Report 22925662 (Version 4)
Quarter: 2023Q4

REPORT INFORMATION
  Report Type: Report from Study
  Country: IT (occurrence: IT)
  Receive Date: 20230908
  Receipt Date: 20231017
  Transmission Date: 20240110
  Serious: Yes (Hospitalization)
  Sender: FDA-Public Use
  Company Number: IT-JNJFOC-20230909748

PATIENT
  Age: 61 Year
  Sex: Female
  Weight: 77 kg

DRUGS (9)
  1. AMIVANTAMAB [Suspect]
     Active Substance: AMIVANTAMAB
     Indication: Non-small cell lung cancer metastatic
     Dosage: MOST RECENT DOSE ON 30/AUG/2023
     Route: 042
     Dates: start: 20230531
  2. CARBOPLATIN [Suspect]
     Active Substance: CARBOPLATIN
     Indication: Non-small cell lung cancer metastatic
     Dosage: MOST RECENT DOSE ON 09/AUG/2023
     Route: 042
     Dates: start: 20230531
  3. PEMETREXED [Suspect]
     Active Substance: PEMETREXED
     Indication: Non-small cell lung cancer metastatic
     Dosage: MOST RECENT DOSE ON 30/AUG/2023
     Route: 042
     Dates: start: 20230531
  4. CHOLECALCIFEROL [Concomitant]
     Active Substance: CHOLECALCIFEROL
     Indication: Osteoporosis postmenopausal
     Dosage: DOSE 1, UNITS NOT PROVIDED); ALSO REPORTED AS 25000 U.I./ML
     Route: 048
     Dates: start: 2011
  5. XGEVA [Concomitant]
     Active Substance: DENOSUMAB
     Indication: Metastases to bone
     Route: 058
     Dates: start: 20230301
  6. BASSADO [DOXYCYCLINE HYCLATE] [Concomitant]
     Indication: Rash
     Route: 048
     Dates: start: 20230601
  7. BISOPROLOL [Concomitant]
     Active Substance: BISOPROLOL\BISOPROLOL FUMARATE
     Indication: Palpitations
     Route: 048
     Dates: start: 20230629
  8. CORTIVIS [Concomitant]
     Indication: Conjunctivitis
     Route: 047
     Dates: start: 20230802
  9. FLOGOCYN [Concomitant]
     Indication: Conjunctivitis
     Route: 047
     Dates: start: 20230825, end: 20230830

REACTIONS (1)
  - Erysipelas [Recovered/Resolved]

NARRATIVE: CASE EVENT DATE: 20230906
